FAERS Safety Report 21548625 (Version 4)
Quarter: 2023Q2

REPORT INFORMATION
  Report Type: Report from Study
  Country: CN (occurrence: CN)
  Receive Date: 20221103
  Receipt Date: 20230622
  Transmission Date: 20230721
  Serious: Yes (Other)
  Sender: FDA-Public Use
  Company Number: CN-TAKEDA-2022TUS056737

PATIENT
  Age: 58 Year
  Sex: Male
  Weight: 58 kg

DRUGS (4)
  1. IXAZOMIB [Suspect]
     Active Substance: IXAZOMIB
     Indication: Plasma cell myeloma
     Dosage: 4 MILLIGRAM, 1/WEEK
     Route: 048
     Dates: start: 20220705
  2. POMALIDOMIDE [Suspect]
     Active Substance: POMALIDOMIDE
     Indication: Plasma cell myeloma
     Dosage: 3 MILLIGRAM, TID
     Route: 048
     Dates: start: 20220705, end: 20220725
  3. DEXAMETHASONE ACETATE [Suspect]
     Active Substance: DEXAMETHASONE ACETATE
     Indication: Plasma cell myeloma
     Dosage: 9.75 MILLIGRAM, BID
     Route: 048
     Dates: start: 20220705, end: 20220727
  4. REPAGLINIDE [Concomitant]
     Active Substance: REPAGLINIDE
     Indication: Diabetes mellitus
     Dosage: 0.5 GRAM, TID
     Route: 048
     Dates: start: 2020

REACTIONS (9)
  - Myelosuppression [Unknown]
  - Aspartate aminotransferase increased [Recovering/Resolving]
  - White blood cell count decreased [Recovering/Resolving]
  - Alanine aminotransferase increased [Recovering/Resolving]
  - Oral infection [Unknown]
  - Abdominal discomfort [Unknown]
  - Respiratory tract infection [Unknown]
  - Diarrhoea [Unknown]
  - Off label use [Unknown]

NARRATIVE: CASE EVENT DATE: 20220803
